FAERS Safety Report 23935423 (Version 1)
Quarter: 2024Q2

REPORT INFORMATION
  Report Type: Spontaneous
  Country: JP (occurrence: JP)
  Receive Date: 20240604
  Receipt Date: 20240604
  Transmission Date: 20240715
  Serious: Yes (Disabling)
  Sender: FDA-Public Use
  Company Number: JP-ABBVIE-5785987

PATIENT
  Age: 68 Year
  Sex: Female

DRUGS (4)
  1. BRIMONIDINE TARTRATE\TIMOLOL MALEATE [Suspect]
     Active Substance: BRIMONIDINE TARTRATE\TIMOLOL MALEATE
     Indication: Open angle glaucoma
     Dosage: 2 DROPS DAILY
     Route: 047
     Dates: end: 202304
  2. RIPASUDIL HYDROCHLORIDE DIHYDRATE [Concomitant]
     Active Substance: RIPASUDIL HYDROCHLORIDE DIHYDRATE
     Indication: Open angle glaucoma
     Dosage: 2 DROPS DAILY
     Route: 047
     Dates: end: 20230408
  3. OMIDENEPAG ISOPROPYL [Concomitant]
     Active Substance: OMIDENEPAG ISOPROPYL
     Indication: Open angle glaucoma
     Dosage: 1 DROP DAILY
     Dates: end: 20230408
  4. LATANOPROST [Suspect]
     Active Substance: LATANOPROST
     Indication: Open angle glaucoma
     Dosage: 1 DROP DAILY,  0.005%
     Route: 047
     Dates: end: 20230408

REACTIONS (1)
  - Corneal opacity [Recovered/Resolved with Sequelae]

NARRATIVE: CASE EVENT DATE: 20220901
